FAERS Safety Report 14381372 (Version 2)
Quarter: 2018Q1

REPORT INFORMATION
  Report Type: Report from Study
  Country: DE (occurrence: DE)
  Receive Date: 20180112
  Receipt Date: 20180223
  Transmission Date: 20180509
  Serious: Yes (Death, Life-Threatening, Other)
  Sender: FDA-Public Use
  Company Number: PHHY2018DE003001

PATIENT
  Age: 83 Year
  Sex: Male
  Weight: 70 kg

DRUGS (1)
  1. ENTRESTO [Suspect]
     Active Substance: SACUBITRIL\VALSARTAN
     Indication: CARDIAC FAILURE CHRONIC
     Dosage: 1 DF(SACUBITRIL 24 MG/ VALSARTAN 26 MG), BID (1-0-1)
     Route: 065
     Dates: start: 20171114, end: 20171205

REACTIONS (11)
  - Diverticular perforation [Fatal]
  - Chronic kidney disease [Fatal]
  - Blood creatinine increased [Fatal]
  - Sepsis [Fatal]
  - Shock [Fatal]
  - Cardiac failure [Fatal]
  - Blood potassium increased [Fatal]
  - Abdominal pain [Fatal]
  - Blood sodium decreased [Fatal]
  - C-reactive protein increased [Unknown]
  - Glomerular filtration rate decreased [Fatal]

NARRATIVE: CASE EVENT DATE: 20171205
